FAERS Safety Report 6315151-4 (Version None)
Quarter: 2009Q3

REPORT INFORMATION
  Report Type: 
  Country: None (occurrence: None)
  Receive Date: 20090818
  Receipt Date: 20090818
  Transmission Date: 20100115
  Serious: Yes (Hospitalization)
  Sender: FDA-Public Use
  Company Number: None

PATIENT
  Age: 66 Year
  Sex: Female
  Weight: 64.41 kg

DRUGS (1)
  1. ROCURONIUM BROMIDE [Suspect]
     Indication: SURGERY
     Dates: start: 20090813, end: 20090813

REACTIONS (3)
  - DRUG EFFECT PROLONGED [None]
  - PRODUCT SUBSTITUTION ISSUE [None]
  - PULMONARY OEDEMA [None]
